FAERS Safety Report 11246738 (Version 4)
Quarter: 2015Q3

REPORT INFORMATION
  Report Type: Spontaneous
  Country: JP (occurrence: JP)
  Receive Date: 20150708
  Receipt Date: 20150817
  Transmission Date: 20151125
  Serious: Yes (Hospitalization, Other)
  Sender: FDA-Public Use
  Company Number: PHJP2015JP011315

PATIENT
  Age: 77 Year
  Sex: Female

DRUGS (2)
  1. DENOSUMAB [Suspect]
     Active Substance: DENOSUMAB
     Indication: METASTASES TO BONE
     Dosage: UNK
     Route: 065
     Dates: start: 2013, end: 2014
  2. ZOMETA [Suspect]
     Active Substance: ZOLEDRONIC ACID
     Indication: METASTASES TO BONE
     Dosage: UNK
     Route: 041
     Dates: start: 2012, end: 2013

REACTIONS (12)
  - Primary sequestrum [Unknown]
  - Swelling [Unknown]
  - Secretion discharge [Unknown]
  - Lymphadenopathy [Unknown]
  - Bone disorder [Unknown]
  - Osteonecrosis of jaw [Recovering/Resolving]
  - Pain [Unknown]
  - Erythema [Unknown]
  - Lymph node pain [Unknown]
  - Necrotising fasciitis [Recovering/Resolving]
  - Gingivitis [Unknown]
  - Skin necrosis [Unknown]

NARRATIVE: CASE EVENT DATE: 2014
